FAERS Safety Report 9716826 (Version 1)
Quarter: 2013Q4

REPORT INFORMATION
  Report Type: Spontaneous
  Country: JP (occurrence: JP)
  Receive Date: 20131127
  Receipt Date: 20131127
  Transmission Date: 20140711
  Serious: Yes (Other)
  Sender: FDA-Public Use
  Company Number: JP-SA-2013SA121321

PATIENT
  Age: 69 Year
  Sex: Male

DRUGS (3)
  1. ELPLAT [Suspect]
     Indication: RECTAL CANCER
     Dosage: 3 CYCLES
     Route: 041
     Dates: start: 201201
  2. ELPLAT [Suspect]
     Indication: RECTAL CANCER
     Dosage: 4TH CYCLE
     Route: 041
  3. XELODA [Concomitant]
     Indication: RECTAL CANCER
     Dates: start: 201201

REACTIONS (4)
  - Acute hepatic failure [Recovering/Resolving]
  - Hepatic encephalopathy [Recovering/Resolving]
  - Venoocclusive liver disease [Recovering/Resolving]
  - Portal hypertension [Recovering/Resolving]
